FAERS Safety Report 22370862 (Version 1)
Quarter: 2023Q2

REPORT INFORMATION
  Report Type: Report from Study
  Country: US (occurrence: US)
  Receive Date: 20230526
  Receipt Date: 20230526
  Transmission Date: 20230722
  Serious: Yes (Other)
  Sender: FDA-Public Use
  Company Number: US-PFIZER INC-202300199427

PATIENT

DRUGS (1)
  1. KETAMINE HYDROCHLORIDE [Suspect]
     Active Substance: KETAMINE HYDROCHLORIDE
     Indication: Sickle cell anaemia with crisis
     Dosage: UNK (INFUSION)
     Route: 041

REACTIONS (4)
  - Bradycardia [Unknown]
  - Confusional state [Unknown]
  - Dizziness [Unknown]
  - Vertigo [Unknown]
